FAERS Safety Report 10149266 (Version 1)
Quarter: 2014Q2

REPORT INFORMATION
  Report Type: Spontaneous
  Country: US (occurrence: None)
  Receive Date: 20140430
  Receipt Date: 20140430
  Transmission Date: 20141212
  Serious: Yes (Hospitalization, Other)
  Sender: FDA-Public Use
  Company Number: 001718556A

PATIENT
  Age: 53 Year
  Sex: Female

DRUGS (5)
  1. MEANINGFUL BEAUTY ANTIOXIDANT DAY CREME WITH SPF 20 [Suspect]
     Dosage: TWICE DAILY DERMAL
     Dates: start: 20140316, end: 20140319
  2. MEANINGFUL BEAUTY SKIN BRIGHTENING DECOLLETE [Suspect]
     Route: 061
     Dates: start: 20140316, end: 20140319
  3. MULTIVITAMINS [Concomitant]
  4. HEALTHCARE SUPPLEMENTS [Concomitant]
  5. NECK TREATMENT WITH SPF 15 [Concomitant]

REACTIONS (4)
  - Eye swelling [None]
  - Rash [None]
  - Blister [None]
  - Lip swelling [None]
